FAERS Safety Report 10011728 (Version 2)
Quarter: 2014Q2

REPORT INFORMATION
  Report Type: Spontaneous
  Country: US (occurrence: None)
  Receive Date: 20140312
  Receipt Date: 20140605
  Transmission Date: 20141212
  Serious: Yes (Other)
  Sender: FDA-Public Use
  Company Number: UTC-045533

PATIENT
  Age: 76 Year
  Sex: Female
  Weight: 79.4 kg

DRUGS (4)
  1. REMODULIN [Suspect]
     Indication: PULMONARY ARTERIAL HYPERTENSION
     Dosage: (0.0645 MCG, 1 IN 1 MIN)
     Route: 058
     Dates: start: 20070814
  2. TRACLEER (BOSENTAN) [Concomitant]
  3. COUMADIN (WARFARIN SODIUM) [Concomitant]
  4. SILDENAFIL (SILDENAFIL) [Concomitant]

REACTIONS (3)
  - Staphylococcal infection [None]
  - Rash [None]
  - Infusion site pain [None]
